FAERS Safety Report 7980375-7 (Version None)
Quarter: 2011Q4

REPORT INFORMATION
  Report Type: 
  Country: None (occurrence: None)
  Receive Date: 20111214
  Receipt Date: 20111206
  Transmission Date: 20120403
  Serious: Yes (Other)
  Sender: FDA-Public Use
  Company Number: GR-JNJFOC-20111204912

PATIENT
  Sex: Male

DRUGS (4)
  1. INVEGA [Suspect]
     Indication: SCHIZOPHRENIA
     Route: 048
  2. AKINETON [Concomitant]
     Indication: SCHIZOPHRENIA
     Route: 065
     Dates: end: 20111114
  3. NOZINAN [Concomitant]
     Indication: SCHIZOPHRENIA
     Route: 065
  4. ALOPERIDIN [Suspect]
     Indication: SCHIZOPHRENIA
     Route: 048
     Dates: end: 20111114

REACTIONS (1)
  - GLAUCOMA [None]
